FAERS Safety Report 24091201 (Version 1)
Quarter: 2024Q3

REPORT INFORMATION
  Report Type: Spontaneous
  Country: US (occurrence: None)
  Receive Date: 20240713
  Receipt Date: 20240713
  Transmission Date: 20241017
  Serious: Yes (Other)
  Sender: Public
  Company Number: None

PATIENT
  Age: 56 Year
  Sex: Female
  Weight: 72.9 kg

DRUGS (1)
  1. LINZESS [Suspect]
     Active Substance: LINACLOTIDE
     Indication: Constipation
     Dosage: 1 TABLET ORAL?
     Route: 048
     Dates: start: 20230526

REACTIONS (3)
  - Diarrhoea [None]
  - Anal incontinence [None]
  - Abdominal distension [None]

NARRATIVE: CASE EVENT DATE: 20240111
